FAERS Safety Report 14029380 (Version 1)
Quarter: 2017Q4

REPORT INFORMATION
  Report Type: Spontaneous
  Country: US (occurrence: US)
  Receive Date: 20171002
  Receipt Date: 20171002
  Transmission Date: 20180321
  Serious: Yes (Other)
  Sender: FDA-Public Use
  Company Number: None

PATIENT
  Age: 16 Year
  Sex: Female

DRUGS (7)
  1. SUMATRIPTAN AUTO INJ [Suspect]
     Active Substance: SUMATRIPTAN
     Indication: HEADACHE
     Route: 030
     Dates: start: 20170621, end: 20170926
  2. OMEPRAZOLE. [Concomitant]
     Active Substance: OMEPRAZOLE
  3. ONDANSETRON [Concomitant]
     Active Substance: ONDANSETRON
  4. NORTREL [Concomitant]
     Active Substance: ETHINYL ESTRADIOL\NORETHINDRONE
  5. RANITIDINE. [Concomitant]
     Active Substance: RANITIDINE
  6. TOPIRAMATE. [Concomitant]
     Active Substance: TOPIRAMATE
  7. FLUOXETINE [Concomitant]
     Active Substance: FLUOXETINE HYDROCHLORIDE

REACTIONS (3)
  - Therapy non-responder [None]
  - Device issue [None]
  - Device ineffective [None]

NARRATIVE: CASE EVENT DATE: 20170929
